FAERS Safety Report 6510640-1 (Version None)
Quarter: 2009Q4

REPORT INFORMATION
  Report Type: 
  Country: None (occurrence: None)
  Receive Date: 20091222
  Receipt Date: 20091012
  Transmission Date: 20100525
  Serious: No
  Sender: FDA-Public Use
  Company Number: US-ASTRAZENECA-2009SE19555

PATIENT
  Age: 71 Year
  Sex: Female
  Weight: 77.1 kg

DRUGS (6)
  1. CRESTOR [Suspect]
     Indication: HYPERCHOLESTEROLAEMIA
     Route: 048
     Dates: start: 20090912
  2. ARIMIDEX [Suspect]
     Indication: BREAST CANCER
     Route: 048
     Dates: start: 20070101
  3. ZOLOFT [Concomitant]
  4. HYTRIN [Concomitant]
  5. MOBIC [Concomitant]
  6. VITAMIN D [Concomitant]

REACTIONS (1)
  - INSOMNIA [None]
